FAERS Safety Report 12938992 (Version 1)
Quarter: 2016Q4

REPORT INFORMATION
  Report Type: Spontaneous
  Country: JP (occurrence: JP)
  Receive Date: 20161115
  Receipt Date: 20161115
  Transmission Date: 20170207
  Serious: Yes (Other)
  Sender: FDA-Public Use
  Company Number: JP-JNJFOC-20161114274

PATIENT

DRUGS (1)
  1. DOXIL [Suspect]
     Active Substance: DOXORUBICIN HYDROCHLORIDE
     Indication: PRODUCT USED FOR UNKNOWN INDICATION
     Route: 013

REACTIONS (6)
  - White blood cell count increased [Unknown]
  - Product use issue [Unknown]
  - Hepatic enzyme increased [Unknown]
  - Off label use [Unknown]
  - Blood urea increased [Unknown]
  - Blood creatinine increased [Unknown]
